FAERS Safety Report 8526813 (Version 7)
Quarter: 2012Q4

REPORT INFORMATION
  Report Type: 
  Country: US (occurrence: US)
  Receive Date: 20120423
  Receipt Date: 20121011
  Transmission Date: 20130627
  Serious: Yes (Hospitalization, Other)
  Sender: FDA-Public Use
  Company Number: US-009507513-1204USA02812

PATIENT

DRUGS (5)
  1. FOSAMAX [Suspect]
     Indication: OSTEOPOROSIS
     Dosage: 10 mg, qd
     Route: 048
     Dates: start: 19970211
  2. FOSAMAX [Suspect]
     Dosage: 70 mg, qw
     Route: 048
     Dates: start: 20010605, end: 20100508
  3. SYNTHROID [Concomitant]
     Dosage: 75 mg, qd
  4. CALCIUM (UNSPECIFIED) [Concomitant]
     Dosage: 600-1500 mg qd
  5. ALENDRONATE SODIUM [Suspect]
     Dosage: 70 mg, qw
     Route: 048

REACTIONS (16)
  - Gastrointestinal disorder [Unknown]
  - Large intestine perforation [Unknown]
  - Open reduction of fracture [Unknown]
  - Femur fracture [Unknown]
  - Low turnover osteopathy [Unknown]
  - Foot fracture [Unknown]
  - Gout [Unknown]
  - Tooth disorder [Unknown]
  - Goitre [Unknown]
  - Fracture delayed union [Unknown]
  - Hyperthyroidism [Unknown]
  - Arthritis [Unknown]
  - Osteopenia [Unknown]
  - Irritable bowel syndrome [Not Recovered/Not Resolved]
  - Back pain [Unknown]
  - Vomiting [Recovered/Resolved]
